FAERS Safety Report 5671107-6 (Version None)
Quarter: 2008Q1

REPORT INFORMATION
  Report Type: 
  Country: None (occurrence: None)
  Receive Date: 20080313
  Receipt Date: 20080306
  Transmission Date: 20080703
  Serious: Yes (Hospitalization)
  Sender: FDA-Public Use
  Company Number: FABR-1000040

PATIENT
  Age: 55 Year
  Sex: Female
  Weight: 105 kg

DRUGS (2)
  1. FABRAZYME [Suspect]
     Indication: FABRY'S DISEASE
     Dosage: 105 MG, Q2W
     Dates: start: 20040101, end: 20070701
  2. FABRAZYME [Suspect]

REACTIONS (12)
  - ABDOMINAL ABSCESS [None]
  - BENIGN BREAST NEOPLASM [None]
  - BLOOD PRESSURE DECREASED [None]
  - BODY TEMPERATURE DECREASED [None]
  - CHOLECYSTITIS INFECTIVE [None]
  - DECUBITUS ULCER [None]
  - DEPRESSION [None]
  - ENTEROCUTANEOUS FISTULA [None]
  - HEPATIC STEATOSIS [None]
  - PANCREATITIS [None]
  - SEPSIS [None]
  - WALKING AID USER [None]
